FAERS Safety Report 7482811-1 (Version None)
Quarter: 2011Q2

REPORT INFORMATION
  Report Type: 
  Country: None (occurrence: None)
  Receive Date: 20110516
  Receipt Date: 20110504
  Transmission Date: 20111010
  Serious: Yes (Death, Hospitalization)
  Sender: FDA-Public Use
  Company Number: GB-WATSON-2011-06589

PATIENT
  Age: 19 Year
  Sex: Female

DRUGS (5)
  1. OMEPRAZOLE [Suspect]
     Indication: EAR INFECTION
     Dosage: UNK
  2. SILDENAFIL CITRATE [Suspect]
     Indication: PULMONARY ARTERIAL HYPERTENSION
     Dosage: 50 MG, TID
  3. MOTILIUM [Suspect]
     Indication: EAR INFECTION
     Dosage: UNK
  4. AMOXICILLIN [Suspect]
     Indication: EAR INFECTION
     Dosage: UNK
  5. SITAXENTAN [Suspect]
     Indication: PRODUCT USED FOR UNKNOWN INDICATION
     Dosage: 100 MG, DAILY

REACTIONS (3)
  - ACUTE HEPATIC FAILURE [None]
  - BRAIN OEDEMA [None]
  - HEPATIC NECROSIS [None]
